FAERS Safety Report 5963571-X (Version None)
Quarter: 2008Q4

REPORT INFORMATION
  Report Type: 
  Country: None (occurrence: None)
  Receive Date: 20081124
  Receipt Date: 20081111
  Transmission Date: 20090506
  Serious: Yes (Hospitalization)
  Sender: FDA-Public Use
  Company Number: JP-EISAI MEDIAL RESEARCH-E3810-02275-SPO-JP

PATIENT
  Age: 73 Year
  Sex: Female

DRUGS (13)
  1. RABEPRAZOLE SODIUM [Suspect]
     Indication: GASTRIC MUCOSAL LESION
     Dosage: UNKNOWN
     Route: 048
     Dates: start: 20080909, end: 20080923
  2. LASIX [Suspect]
     Route: 048
     Dates: start: 20080918
  3. LASIX [Suspect]
     Route: 042
     Dates: start: 20080906, end: 20080912
  4. LASIX [Suspect]
     Route: 042
     Dates: start: 20080906, end: 20080912
  5. ALOSITOL [Concomitant]
     Route: 048
  6. DIOVAN [Concomitant]
     Route: 048
  7. FOIPAN [Concomitant]
     Route: 048
  8. FERO-GRADUMET [Concomitant]
     Route: 048
  9. CINAL [Concomitant]
     Route: 048
  10. MYSLEE [Concomitant]
     Route: 048
  11. RIVOTRIL [Concomitant]
     Route: 048
  12. ALFAROL [Concomitant]
     Route: 048
  13. URIC ACID [Concomitant]

REACTIONS (2)
  - INAPPROPRIATE ANTIDIURETIC HORMONE SECRETION [None]
  - MALAISE [None]
